FAERS Safety Report 17968089 (Version 4)
Quarter: 2020Q3

REPORT INFORMATION
  Report Type: Report from Study
  Country: US (occurrence: US)
  Receive Date: 20200701
  Receipt Date: 20200925
  Transmission Date: 20201103
  Serious: No
  Sender: FDA-Public Use
  Company Number: NVSC2020US182469

PATIENT
  Sex: Male

DRUGS (2)
  1. ENTRESTO [Suspect]
     Active Substance: SACUBITRIL\VALSARTAN
     Route: 048
  2. ENTRESTO [Suspect]
     Active Substance: SACUBITRIL\VALSARTAN
     Indication: PRODUCT USED FOR UNKNOWN INDICATION
     Dosage: 0.5 DF, BID(24/26MG)
     Route: 048

REACTIONS (5)
  - Hypotension [Unknown]
  - Ejection fraction abnormal [Unknown]
  - Product prescribing error [Unknown]
  - Dizziness [Unknown]
  - Wrong technique in product usage process [Unknown]
